FAERS Safety Report 6393540-X (Version None)
Quarter: 2009Q4

REPORT INFORMATION
  Report Type: 
  Country: None (occurrence: None)
  Receive Date: 20091008
  Receipt Date: 20091006
  Transmission Date: 20100525
  Serious: Yes (Other)
  Sender: FDA-Public Use
  Company Number: B0593576A

PATIENT
  Sex: Female

DRUGS (10)
  1. ONDANSETRON [Suspect]
     Route: 042
  2. REMIFENTANIL [Concomitant]
     Dates: start: 20090806
  3. PROPOFOL [Concomitant]
  4. ATRACURIUM [Concomitant]
  5. ATRACURIUM [Concomitant]
  6. DEXAMETHASONE 0.5MG TAB [Concomitant]
  7. CEFTRIAXONE [Concomitant]
  8. METRONIDAZOLE [Concomitant]
  9. ACETAMINOPHEN [Concomitant]
  10. MORPHINE [Concomitant]

REACTIONS (1)
  - MUSCLE SPASMS [None]
